FAERS Safety Report 24736582 (Version 1)
Quarter: 2024Q4

REPORT INFORMATION
  Report Type: Report from Study
  Country: PT (occurrence: PT)
  Receive Date: 20241216
  Receipt Date: 20241216
  Transmission Date: 20250115
  Serious: Yes (Hospitalization, Other)
  Sender: ABBVIE
  Company Number: PT-ABBVIE-6043711

PATIENT
  Age: 80 Year
  Sex: Male

DRUGS (18)
  1. CARBIDOPA\LEVODOPA [Suspect]
     Active Substance: CARBIDOPA\LEVODOPA
     Indication: Parkinson^s disease
     Dosage: 20 MG + 5 MG - FREQUENCY TEXT: MORN:16.5CC;MAIN:6.4CC/H;EXTRA:6CC
     Route: 050
     Dates: start: 2024
  2. CARBIDOPA\LEVODOPA [Suspect]
     Active Substance: CARBIDOPA\LEVODOPA
     Dosage: 20 MG + 5 MG - FREQUENCY TEXT: MORN:7.3CC;MAIN:4.3CC/H;EXTRA:1CC STOP DATE TEXT: UNKNOWN
     Route: 050
     Dates: start: 20230621
  3. MEMANTINE [Concomitant]
     Active Substance: MEMANTINE
     Indication: Product used for unknown indication
     Dosage: 2 TABLET FORM STRENGTH: 10 MILLIGRAM? FREQUENCY TEXT: BREAKFAST AND AT DINNER?START DATE TEXT: BE...
  4. PANTOPRAZOLE [Concomitant]
     Active Substance: PANTOPRAZOLE
     Indication: Product used for unknown indication
     Dosage: 1 TABLET FORM STRENGTH: 20 MILLIGRAM - FREQUENCY TEXT: AT FASTING START DATE TEXT: BEFORE DUODOPA
  5. SINEMET CR [Concomitant]
     Active Substance: CARBIDOPA\LEVODOPA
     Indication: Product used for unknown indication
     Dosage: 1 TABLET FREQUENCY TEXT: AT BEDTIME 200/50?START DATE TEXT: BEFORE DUODOPA
  6. LASIX [Concomitant]
     Active Substance: FUROSEMIDE
     Indication: Product used for unknown indication
     Dosage: START DATE TEXT: UNKNOWN
     Dates: end: 202412
  7. SIMVASTATIN [Concomitant]
     Active Substance: SIMVASTATIN
     Indication: Product used for unknown indication
     Dosage: 1 TABLET FORM STRENGTH: 20 MILLIGRAM FREQUENCY TEXT: AT BEDTIME START DATE TEXT: BEFORE DUODOPA
  8. FLUOXETINE [Concomitant]
     Active Substance: FLUOXETINE HYDROCHLORIDE
     Indication: Product used for unknown indication
     Dosage: FORM STRENGTH: 20  MILLIGRAM FREQUENCY TEXT: AT BREAKFAST, EVERY OTHER DAY START DATE TEXT: BEFOR...
     Route: 048
  9. RIVASTIGMINE [Concomitant]
     Active Substance: RIVASTIGMINE
     Indication: Product used for unknown indication
     Dosage: 13,3 MG/24H FREQUENCY TEXT: 1 PATCH DAILY START DATE TEXT: BEFORE DUODOPA
     Route: 062
  10. RAMIPRIL [Concomitant]
     Active Substance: RAMIPRIL
     Indication: Product used for unknown indication
     Dosage: 1 TABLET -FORM STRENGTH: 5 MILLIGRAM? FREQUENCY TEXT: AT BREAKFAST START DATE TEXT: BEFORE
  11. NEUROBION [Concomitant]
     Active Substance: CYANOCOBALAMIN\PYRIDOXINE\THIAMINE
     Indication: Product used for unknown indication
     Dosage: 1 TABLET START DATE TEXT: BEFORE DUODOPA
  12. AMANTADINE HYDROCHLORIDE [Concomitant]
     Active Substance: AMANTADINE HYDROCHLORIDE
     Indication: Product used for unknown indication
     Dosage: 1 TABLET FREQUENCY TEXT: AT BREAKFAST START DATE TEXT: BEFORE DUODOPA STOP DATE TEXT: UPON DUODOP...
  13. MIRABEGRON [Concomitant]
     Active Substance: MIRABEGRON
     Indication: Product used for unknown indication
     Dosage: 1 CAPSULE?FORM STRENGTH: 25 : MILLIGRAM FREQUENCY TEXT: AT BREAKFAST BEFORE DUODOPA
     Route: 048
  14. DUTASTERIDE\TAMSULOSIN HYDROCHLORIDE [Concomitant]
     Active Substance: DUTASTERIDE\TAMSULOSIN HYDROCHLORIDE
     Indication: Product used for unknown indication
     Dosage: 5 MG + 4 MG FREQUENCY TEXT: 1 TABLET AT LUNCH - START DATE TEXT: BEFORE DUODOPA
  15. FOLIC ACID [Concomitant]
     Active Substance: FOLIC ACID
     Indication: Product used for unknown indication
     Dosage: FORM STRENGTH: 5  MILLIGRAM? FREQUENCY TEXT: 1 TABLET AT LUNCH ON SATURDAYS + SUNDAYS? START DATE...
  16. RIVOTRIL [Concomitant]
     Active Substance: CLONAZEPAM
     Indication: Product used for unknown indication
     Dosage: 1 TABLET FORM STRENGTH: 0.5 MILLIGRAM FREQUENCY TEXT: AT BEDTIME START DATE TEXT: BEFORE DUODOPA
  17. EDOXABAN TOSYLATE [Concomitant]
     Active Substance: EDOXABAN TOSYLATE
     Indication: Product used for unknown indication
     Dosage: 1 TABLET - FORM STRENGTH: 60 MILLIGRAMSTART DATE TEXT: BEFORE DUODOPA
  18. SPIRONOLACTONE DC [Concomitant]
     Indication: Product used for unknown indication
     Dosage: START DATE TEXT: UNKNOWN?FREQUENCY TEXT: AT 8 PM
     Dates: start: 202412

REACTIONS (2)
  - Hypotension [Not Recovered/Not Resolved]
  - Urinary tract infection [Unknown]

NARRATIVE: CASE EVENT DATE: 20240101
